FAERS Safety Report 8269018-5 (Version None)
Quarter: 2012Q2

REPORT INFORMATION
  Report Type: 
  Country: None (occurrence: None)
  Receive Date: 20120409
  Receipt Date: 20120227
  Transmission Date: 20120825
  Serious: Yes (Hospitalization)
  Sender: FDA-Public Use
  Company Number: CA-BAYER-2012-015477

PATIENT
  Age: 71 Year
  Sex: Male
  Weight: 81.633 kg

DRUGS (7)
  1. AVELOX [Suspect]
     Indication: BRONCHITIS
     Dosage: UNK
     Dates: start: 20120214
  2. BRICANYL [Concomitant]
  3. SYMBICORT [Concomitant]
  4. NASONEX [Concomitant]
  5. PRAVASTATIN [Concomitant]
  6. NEXIUM [Concomitant]
  7. BROMAZEPAM [Concomitant]
     Dosage: 3 MG, BID

REACTIONS (3)
  - RASH GENERALISED [None]
  - ERYTHEMA [None]
  - DYSPNOEA [None]
